FAERS Safety Report 21475995 (Version 1)
Quarter: 2022Q4

REPORT INFORMATION
  Report Type: Spontaneous
  Country: US (occurrence: None)
  Receive Date: 20221019
  Receipt Date: 20221019
  Transmission Date: 20230113
  Serious: Yes (Hospitalization, Other)
  Sender: FDA-Public Use
  Company Number: US-Unichem Pharmaceuticals (USA) Inc-UCM202210-001065

PATIENT
  Age: 74 Year
  Sex: Male

DRUGS (1)
  1. METFORMIN HYDROCHLORIDE [Suspect]
     Active Substance: METFORMIN HYDROCHLORIDE
     Indication: Product used for unknown indication
     Dosage: UNKNOWN

REACTIONS (5)
  - Hyperkalaemia [Recovering/Resolving]
  - Cardiac arrest [Recovering/Resolving]
  - Vasoplegia syndrome [Recovering/Resolving]
  - Lactic acidosis [Recovering/Resolving]
  - Toxicity to various agents [Unknown]
